FAERS Safety Report 10239181 (Version 1)
Quarter: 2014Q2

REPORT INFORMATION
  Report Type: Spontaneous
  Country: US (occurrence: US)
  Receive Date: 20140616
  Receipt Date: 20140616
  Transmission Date: 20141212
  Serious: No
  Sender: FDA-Public Use
  Company Number: US-PFIZER INC-2014162369

PATIENT
  Age: 66 Year
  Sex: Male
  Weight: 126.98 kg

DRUGS (15)
  1. LYRICA [Suspect]
     Indication: PAIN IN EXTREMITY
     Dosage: 75 MG, 1X/DAY
     Route: 048
     Dates: start: 20140528, end: 201406
  2. LYRICA [Suspect]
     Indication: FIBROMYALGIA
     Dosage: 75 MG, 2X/DAY
     Route: 048
     Dates: start: 201406
  3. REBIF [Concomitant]
     Indication: MULTIPLE SCLEROSIS
     Dosage: 44 UG, 3X/WEEK
  4. NAMENDA [Concomitant]
     Indication: COGNITIVE DISORDER
     Dosage: 10 MG, 2X/DAY
  5. NAPROXEN [Concomitant]
     Indication: ARTHRITIS
     Dosage: 500 MG, 2X/DAY
  6. BACLOFEN [Concomitant]
     Dosage: 20 MG, 2X/DAY
  7. CYMBALTA [Concomitant]
     Dosage: 60 MG, 1X/DAY AT BED TIME
  8. AMANTADINE [Concomitant]
     Dosage: 100 MG, 1X/DAY
  9. LISINOPRIL [Concomitant]
     Indication: HYPERTENSION
     Dosage: 20 MG, 1X/DAY
  10. VITAMIN D [Concomitant]
     Dosage: UNK
  11. VITAMIN B1 [Concomitant]
     Dosage: UNK
  12. VITAMIN B3 [Concomitant]
     Dosage: UNK
  13. VITAMIN B6 [Concomitant]
     Dosage: UNK
  14. VITAMIN B12 [Concomitant]
     Dosage: UNK
  15. CALCIUM [Concomitant]
     Dosage: UNK

REACTIONS (4)
  - Dry mouth [Not Recovered/Not Resolved]
  - Headache [Not Recovered/Not Resolved]
  - Increased appetite [Not Recovered/Not Resolved]
  - Abnormal dreams [Not Recovered/Not Resolved]
